FAERS Safety Report 21978611 (Version 1)
Quarter: 2023Q1

REPORT INFORMATION
  Report Type: Spontaneous
  Country: US (occurrence: None)
  Receive Date: 20230210
  Receipt Date: 20230210
  Transmission Date: 20230417
  Serious: No
  Sender: FDA-Public Use
  Company Number: 2023A008623

PATIENT
  Sex: Male

DRUGS (2)
  1. LYNPARZA [Suspect]
     Active Substance: OLAPARIB
     Route: 048
  2. ORGOVYX [Concomitant]
     Active Substance: RELUGOLIX
     Route: 065

REACTIONS (1)
  - Feeling abnormal [Unknown]
